FAERS Safety Report 5708733-1 (Version None)
Quarter: 2008Q2

REPORT INFORMATION
  Report Type: 
  Country: None (occurrence: None)
  Receive Date: 20080408
  Receipt Date: 20060306
  Transmission Date: 20081010
  Serious: No
  Sender: FDA-Public Use
  Company Number: WSDF_00522

PATIENT
  Age: 35 Year
  Sex: Female
  Weight: 98.5 kg

DRUGS (6)
  1. WINRHO SDF [Suspect]
     Indication: RHESUS HAEMOLYTIC DISEASE OF NEWBORN
     Dosage: 600 MCG ONCE; IV
     Route: 042
     Dates: start: 20060304, end: 20060304
  2. ANCEF [Concomitant]
  3. DEMEROL [Concomitant]
  4. GRAVOL TAB [Concomitant]
  5. NAPROSYN [Concomitant]
  6. FENTANYL + BUPIVICAINE [Concomitant]
     Route: 024

REACTIONS (10)
  - BLOOD PRESSURE INCREASED [None]
  - CHILLS [None]
  - EAR DISCOMFORT [None]
  - FEELING HOT [None]
  - HEART RATE INCREASED [None]
  - INFUSION RELATED REACTION [None]
  - LIVEDO RETICULARIS [None]
  - PALLOR [None]
  - PYREXIA [None]
  - TACHYCARDIA [None]
